FAERS Safety Report 17377139 (Version 2)
Quarter: 2020Q1

REPORT INFORMATION
  Report Type: Spontaneous
  Country: JP (occurrence: JP)
  Receive Date: 20200206
  Receipt Date: 20200226
  Transmission Date: 20200409
  Serious: No
  Sender: FDA-Public Use
  Company Number: JP-PFIZER INC-2020041664

PATIENT

DRUGS (1)
  1. FOSTOIN [Suspect]
     Active Substance: FOSPHENYTOIN SODIUM
     Dosage: 450 MG, UNK
     Route: 041

REACTIONS (2)
  - Infusion site swelling [Recovering/Resolving]
  - Infusion site extravasation [Unknown]
